FAERS Safety Report 4954834-5 (Version None)
Quarter: 2006Q1

REPORT INFORMATION
  Report Type: 
  Country: None (occurrence: None)
  Receive Date: 20060327
  Receipt Date: 20051207
  Transmission Date: 20060701
  Serious: Yes (Hospitalization)
  Sender: FDA-Public Use
  Company Number: US-MERCK-0512USA01289

PATIENT
  Age: 70 Year
  Sex: Female
  Weight: 66 kg

DRUGS (34)
  1. VIOXX [Suspect]
     Indication: RHEUMATOID ARTHRITIS
     Route: 048
     Dates: start: 19991111, end: 20040820
  2. MS CONTIN [Concomitant]
     Route: 048
     Dates: start: 20010313, end: 20030701
  3. DURAGESIC-100 [Concomitant]
     Indication: ARTHRALGIA
     Route: 048
     Dates: start: 20020103, end: 20050101
  4. METHOTREXATE [Concomitant]
     Indication: RHEUMATOID ARTHRITIS
     Route: 065
     Dates: start: 19980425
  5. HYDROCHLOROTHIAZIDE [Concomitant]
     Indication: HYPERTENSION
     Route: 048
     Dates: start: 19980404
  6. PRAVACHOL [Concomitant]
     Indication: BLOOD CHOLESTEROL
     Route: 048
     Dates: start: 19981211, end: 20050301
  7. AVAPRO [Concomitant]
     Indication: HYPERTENSION
     Route: 048
     Dates: start: 19990920, end: 20051123
  8. ARAVA [Concomitant]
     Indication: RHEUMATOID ARTHRITIS
     Route: 048
     Dates: start: 19990310
  9. PREVACID [Concomitant]
     Indication: GASTROOESOPHAGEAL REFLUX DISEASE
     Route: 065
  10. ACTONEL [Concomitant]
     Indication: OSTEOPOROSIS
     Route: 065
  11. PREDNISONE [Concomitant]
     Indication: ARTHRALGIA
     Route: 065
  12. XANAX [Concomitant]
     Indication: ANXIETY
     Route: 048
     Dates: start: 20020708, end: 20031006
  13. LACTULOSE [Concomitant]
     Route: 065
  14. HYDROCODONE BITARTRATE [Concomitant]
     Route: 048
     Dates: start: 19980917, end: 20010201
  15. ADDERALL TABLETS [Concomitant]
     Indication: NARCOLEPSY
     Route: 065
  16. ACETAMINOPHEN AND PROPOXYPHENE NAPSYLATE [Concomitant]
     Indication: PAIN
     Route: 048
     Dates: start: 19980406, end: 20010301
  17. MIACALCIN [Concomitant]
     Indication: OSTEITIS DEFORMANS
     Route: 065
  18. CYLERT [Concomitant]
     Indication: ATTENTION DEFICIT/HYPERACTIVITY DISORDER
     Route: 065
  19. CEPHALEXIN [Concomitant]
     Indication: INFECTION
     Route: 065
  20. CIPRO [Concomitant]
     Route: 065
  21. PROMETHAZINE [Concomitant]
     Route: 065
  22. ENDOCET [Concomitant]
     Route: 065
  23. TALWIN [Concomitant]
     Route: 065
     Dates: start: 20001130, end: 20001130
  24. VICOPROFEN [Concomitant]
     Route: 048
     Dates: start: 20000127, end: 20000316
  25. ACCUPRIL [Concomitant]
     Indication: HYPERTENSION
     Route: 048
     Dates: start: 19980406, end: 19990801
  26. AGGRENOX [Concomitant]
     Route: 065
  27. DICLOFENAC SANDOZ [Concomitant]
     Indication: ARTHRALGIA
     Route: 048
     Dates: start: 19980425, end: 19991001
  28. SANDIMMUNE [Concomitant]
     Indication: ORGAN TRANSPLANT
     Route: 065
  29. VANCENASE [Concomitant]
     Route: 065
  30. BEXTRA [Concomitant]
     Route: 048
     Dates: start: 20040101
  31. MORPHINE SULFATE [Concomitant]
     Route: 048
     Dates: start: 20010313, end: 20030329
  32. MORPHINE [Concomitant]
     Route: 048
     Dates: start: 20030801
  33. FENTANYL [Concomitant]
     Route: 048
     Dates: start: 20050405, end: 20050405
  34. ALPRAZOLAM [Concomitant]
     Indication: ANXIETY DISORDER
     Route: 048
     Dates: start: 20020604, end: 20050325

REACTIONS (12)
  - BACTERIAL INFECTION [None]
  - CEREBROVASCULAR ACCIDENT [None]
  - COMPRESSION FRACTURE [None]
  - CONSTIPATION [None]
  - EMOTIONAL DISTRESS [None]
  - INFECTION [None]
  - JOINT ABSCESS [None]
  - LENS IMPLANT [None]
  - PARAESTHESIA [None]
  - TRANSIENT ISCHAEMIC ATTACK [None]
  - VISUAL DISTURBANCE [None]
  - VOMITING [None]
